FAERS Safety Report 7955684-8 (Version None)
Quarter: 2011Q4

REPORT INFORMATION
  Report Type: 
  Country: None (occurrence: None)
  Receive Date: 20111204
  Receipt Date: 20111011
  Transmission Date: 20120403
  Serious: No
  Sender: FDA-Public Use
  Company Number: US-ALLERGAN-1113440US

PATIENT
  Age: 34 Year
  Sex: Female

DRUGS (2)
  1. ACZONE [Suspect]
     Indication: ACNE
     Dosage: ONE APPLICATION, USED FOR FEW DAYS
     Route: 061
  2. ACZONE [Suspect]
     Dosage: OLD CREAMIER TUBE
     Route: 061

REACTIONS (1)
  - PARAESTHESIA [None]
